FAERS Safety Report 18252046 (Version 5)
Quarter: 2021Q1

REPORT INFORMATION
  Report Type: Spontaneous
  Country: US (occurrence: US)
  Receive Date: 20200910
  Receipt Date: 20210118
  Transmission Date: 20210419
  Serious: No
  Sender: FDA-Public Use
  Company Number: US-SA-2020SA242080

PATIENT
  Age: 69 Year
  Sex: Female

DRUGS (2)
  1. LANTUS [Suspect]
     Active Substance: INSULIN GLARGINE
     Dosage: DOSE INCREASED
     Route: 065
  2. LANTUS [Suspect]
     Active Substance: INSULIN GLARGINE
     Indication: TYPE 2 DIABETES MELLITUS
     Dosage: 35 IU, QD
     Route: 065

REACTIONS (9)
  - Polyuria [Unknown]
  - Arthritis [Unknown]
  - Product dose omission in error [Unknown]
  - Renal disorder [Unknown]
  - Blood glucose increased [Unknown]
  - Injection site pain [Unknown]
  - Injury associated with device [Unknown]
  - Device issue [Unknown]
  - Insomnia [Unknown]
